FAERS Safety Report 18800020 (Version 1)
Quarter: 2021Q1

REPORT INFORMATION
  Report Type: Spontaneous
  Country: PL (occurrence: PL)
  Receive Date: 20210128
  Receipt Date: 20210128
  Transmission Date: 20210419
  Serious: Yes (Hospitalization)
  Sender: FDA-Public Use
  Company Number: PL-MYLANLABS-2021M1005374

PATIENT
  Age: 36 Year
  Sex: Female

DRUGS (13)
  1. KETOPROFEN. [Suspect]
     Active Substance: KETOPROFEN
     Indication: PAIN
     Dosage: THE PATIENT WAS GIVEN KETOPROFEN AT A DOSE
  2. MORPHINE [Suspect]
     Active Substance: MORPHINE
     Indication: PAIN
     Dosage: THE INITIAL DOSE OF MORPHINE WAS
  3. AMITRIPTYLINE [Concomitant]
     Active Substance: AMITRIPTYLINE
     Indication: ANXIETY
     Dosage: THE PATIENT WAS GIVEN AMITRIPTYLINE
  4. FENTANYL. [Concomitant]
     Active Substance: FENTANYL
     Indication: PAIN
     Dosage: THE INITIAL DOSE OF TRANSMUCOSAL
  5. OXYCODONE [Suspect]
     Active Substance: OXYCODONE
     Indication: PAIN
     Dosage: THE DOSE OF OXYCODONE WAS GRADUALLY
  6. LEVOTHYROXINE. [Concomitant]
     Active Substance: LEVOTHYROXINE
     Indication: GOITRE
     Dosage: 100 MICROGRAM, QD,1 ? 100 UG
  7. METHADONE [Suspect]
     Active Substance: METHADONE HYDROCHLORIDE
     Indication: PAIN
     Dosage: THE PATIENT WAS GIVEN METHADONE AT A DOSE OF 3 MG
  8. VENLAFAXIN [Concomitant]
     Active Substance: VENLAFAXINE HYDROCHLORIDE
     Indication: ANXIETY
     Dosage: THE PATIENT WAS GIVEN VENLAFAXIN
  9. GABAPENTIN. [Suspect]
     Active Substance: GABAPENTIN
     Indication: NEURALGIA
     Dosage: THE PATIENT WAS GIVEN GABAPENTIN
  10. GABAPENTIN. [Suspect]
     Active Substance: GABAPENTIN
     Dosage: THE DOSE OF GABAPENTIN WAS INCREASED TO
  11. TRAMADOL. [Suspect]
     Active Substance: TRAMADOL
     Dosage: THE PATIENT WAS GIVEN TRAMADOL ?
  12. NALOXONE [Suspect]
     Active Substance: NALOXONE
     Indication: PAIN
     Dosage: THE DOSE OF NALOXONE WAS GRADUALLY
  13. TRAMADOL. [Suspect]
     Active Substance: TRAMADOL
     Indication: PAIN
     Dosage: THE PATIENT WAS GIVEN TRAMADOL,

REACTIONS (2)
  - Constipation [Recovered/Resolved]
  - Drug ineffective [Recovering/Resolving]
